FAERS Safety Report 8486197 (Version 3)
Quarter: 2013Q2

REPORT INFORMATION
  Report Type: Spontaneous
  Country: US (occurrence: US)
  Receive Date: 20120402
  Receipt Date: 20130402
  Transmission Date: 20140414
  Serious: No
  Sender: FDA-Public Use
  Company Number: US-PFIZER INC-2012079468

PATIENT
  Age: 82 Year
  Sex: Female

DRUGS (1)
  1. XALKORI [Suspect]
     Indication: LUNG NEOPLASM MALIGNANT
     Dosage: 250 MG, 2X/DAY
     Dates: start: 20120323

REACTIONS (5)
  - Gastrooesophageal reflux disease [Unknown]
  - Visual impairment [Unknown]
  - Diarrhoea [Unknown]
  - Nausea [Unknown]
  - Oedema peripheral [Unknown]
